FAERS Safety Report 7230491-2 (Version None)
Quarter: 2011Q1

REPORT INFORMATION
  Report Type: 
  Country: None (occurrence: None)
  Receive Date: 20110118
  Receipt Date: 20110104
  Transmission Date: 20110831
  Serious: Yes (Hospitalization, Other)
  Sender: FDA-Public Use
  Company Number: PHHY2010NL57341

PATIENT
  Sex: Male

DRUGS (11)
  1. ZOMETA [Suspect]
     Indication: PROSTATE CANCER METASTATIC
     Dosage: 4 MG
     Route: 042
     Dates: start: 20100315
  2. ZOMETA [Suspect]
     Dosage: 4 MG
     Route: 042
     Dates: start: 20100803
  3. ANTIBIOTICS [Concomitant]
     Route: 041
  4. PREDNISONE [Concomitant]
     Dosage: 5 MG, BID
  5. ZOMETA [Suspect]
     Dosage: 4 MG
     Route: 042
     Dates: start: 20101101
  6. LUCRIN [Concomitant]
     Dosage: 30 MG, 1X PER 6 MONTHS
  7. ZOMETA [Suspect]
     Dosage: 4 MG
     Route: 042
     Dates: start: 20101129
  8. ZOMETA [Suspect]
     Dosage: 4 MG
     Route: 042
     Dates: start: 20110104
  9. PREDNISONE [Concomitant]
     Dosage: 5 MG, QD
  10. ZOMETA [Suspect]
     Dosage: 4 MG
     Route: 042
     Dates: start: 20100705
  11. ARANESP [Concomitant]

REACTIONS (8)
  - RENAL DISORDER [None]
  - DEVICE OCCLUSION [None]
  - DYSURIA [None]
  - FLANK PAIN [None]
  - URINARY TRACT DISORDER [None]
  - METASTASES TO BONE [None]
  - PROSTATIC SPECIFIC ANTIGEN INCREASED [None]
  - NEOPLASM MALIGNANT [None]
